FAERS Safety Report 8506650-5 (Version None)
Quarter: 2012Q3

REPORT INFORMATION
  Report Type: 
  Country: None (occurrence: None)
  Receive Date: 20120712
  Receipt Date: 20120703
  Transmission Date: 20120928
  Serious: Yes (Other)
  Sender: FDA-Public Use
  Company Number: PHHY2012FR056366

PATIENT
  Age: 58 Year
  Sex: Female

DRUGS (7)
  1. VIVELLE-DOT [Suspect]
     Dosage: 37.5 UG,
     Route: 062
  2. SIMVASTATIN [Suspect]
     Indication: HYPERLIPIDAEMIA
  3. VIVELLE-DOT [Suspect]
     Indication: HORMONE REPLACEMENT THERAPY
     Dosage: 25 UG,
     Route: 062
     Dates: start: 20100318
  4. XANAX [Concomitant]
  5. VIVELLE-DOT [Suspect]
     Dosage: 75 UG, 2 PATCHES WEEKLY
     Route: 062
     Dates: start: 20120601, end: 20120624
  6. ESOMEPRAZOLE [Concomitant]
  7. AMITRIPTYLINE HCL [Concomitant]
     Indication: MUSCLE SPASMS

REACTIONS (11)
  - BLOOD CHOLESTEROL INCREASED [None]
  - BLOOD TRIGLYCERIDES INCREASED [None]
  - DYSPEPSIA [None]
  - OEDEMA PERIPHERAL [None]
  - INTERVERTEBRAL DISC PROTRUSION [None]
  - PAIN [None]
  - PARAESTHESIA [None]
  - MONOPLEGIA [None]
  - WEIGHT INCREASED [None]
  - LIMB DISCOMFORT [None]
  - HIGH DENSITY LIPOPROTEIN INCREASED [None]
